FAERS Safety Report 23772800 (Version 1)
Quarter: 2024Q2

REPORT INFORMATION
  Report Type: Spontaneous
  Country: US (occurrence: None)
  Receive Date: 20240422
  Receipt Date: 20240422
  Transmission Date: 20240717
  Serious: No
  Sender: FDA-Public Use
  Company Number: None

PATIENT
  Sex: Male

DRUGS (11)
  1. GENGRAF [Suspect]
     Active Substance: CYCLOSPORINE
     Indication: Heart transplant
     Dosage: OTHER FREQUENCY : IN THE MORNING;?
     Route: 048
  2. GENGRAF [Suspect]
     Active Substance: CYCLOSPORINE
     Dosage: OTHER FREQUENCY : IN THE EVENING;?
     Route: 048
     Dates: start: 20160218
  3. ASPIRIN [Concomitant]
     Active Substance: ASPIRIN
  4. DILTIAZEM [Concomitant]
     Active Substance: DILTIAZEM
  5. ELIQUIS [Concomitant]
     Active Substance: APIXABAN
  6. GABAPENTIN [Concomitant]
     Active Substance: GABAPENTIN
  7. HUMULIN R [Concomitant]
     Active Substance: INSULIN HUMAN
  8. HYTRIN [Concomitant]
     Active Substance: TERAZOSIN HYDROCHLORIDE
  9. LEVOTHYROXINE [Concomitant]
     Active Substance: LEVOTHYROXINE\LEVOTHYROXINE SODIUM
  10. MYCOPHENOLOATE MOFETIL [Concomitant]
  11. SYNTHROID [Concomitant]
     Active Substance: LEVOTHYROXINE SODIUM

REACTIONS (1)
  - Lung disorder [None]
